FAERS Safety Report 4754104-4 (Version None)
Quarter: 2005Q3

REPORT INFORMATION
  Report Type: 
  Country: None (occurrence: None)
  Receive Date: 20050826
  Receipt Date: 20050816
  Transmission Date: 20060218
  Serious: Yes (Other)
  Sender: FDA-Public Use
  Company Number: NL-MERCK-0508NLD00012

PATIENT
  Age: 52 Year
  Sex: Female

DRUGS (5)
  1. VIOXX [Suspect]
     Route: 048
     Dates: start: 20010326, end: 20020225
  2. FENTANYL [Concomitant]
     Route: 061
  3. PIROXICAM [Concomitant]
     Route: 048
  4. ACETAMINOPHEN AND CODEINE [Concomitant]
     Route: 048
  5. IBUPROFEN [Concomitant]
     Route: 048

REACTIONS (1)
  - ALOPECIA [None]
